FAERS Safety Report 7571754-0 (Version None)
Quarter: 2011Q2

REPORT INFORMATION
  Report Type: 
  Country: None (occurrence: None)
  Receive Date: 20110624
  Receipt Date: 20110617
  Transmission Date: 20111010
  Serious: Yes (Other)
  Sender: FDA-Public Use
  Company Number: US-SANOFI-AVENTIS-2011SA039134

PATIENT
  Age: 76 Year
  Sex: Female

DRUGS (5)
  1. SOLOSTAR [Suspect]
     Indication: TYPE 2 DIABETES MELLITUS
     Dates: start: 20110613, end: 20110617
  2. LANTUS [Suspect]
     Indication: TYPE 2 DIABETES MELLITUS
     Dosage: DOSE:130 UNIT(S)
     Route: 058
     Dates: start: 20100101
  3. APIDRA [Suspect]
     Indication: TYPE 2 DIABETES MELLITUS
     Dosage: ONCE DAILY IN EVENING DOSE:20 UNIT(S)
     Route: 058
     Dates: start: 20110613, end: 20110617
  4. ALL OTHER THERAPEUTIC PRODUCTS [Concomitant]
  5. DIURETICS [Suspect]
     Route: 065
     Dates: start: 20110613, end: 20110619

REACTIONS (2)
  - BLOOD PRESSURE DECREASED [None]
  - BLOOD GLUCOSE INCREASED [None]
